FAERS Safety Report 5844543-2 (Version None)
Quarter: 2008Q3

REPORT INFORMATION
  Report Type: 
  Country: None (occurrence: None)
  Receive Date: 20080814
  Receipt Date: 20080811
  Transmission Date: 20090109
  Serious: Yes (Hospitalization, Other)
  Sender: FDA-Public Use
  Company Number: PHHO2005US06062

PATIENT
  Sex: Female
  Weight: 81.6 kg

DRUGS (3)
  1. EXELON EXELON+CAP [Suspect]
     Indication: DEMENTIA ALZHEIMER'S TYPE
     Dosage: 3-12 MG/DAY
     Dates: start: 20050310
  2. RESTORIL [Concomitant]
  3. TYLENOL [Concomitant]

REACTIONS (4)
  - NAUSEA [None]
  - PALLOR [None]
  - SYNCOPE [None]
  - VOMITING [None]
